FAERS Safety Report 21435996 (Version 1)
Quarter: 2022Q4

REPORT INFORMATION
  Report Type: Report from Study
  Country: US (occurrence: US)
  Receive Date: 20221010
  Receipt Date: 20221010
  Transmission Date: 20230113
  Serious: No
  Sender: FDA-Public Use
  Company Number: US-ABBVIE-4146662

PATIENT
  Age: 28 Year
  Sex: Female
  Weight: 79.378 kg

DRUGS (4)
  1. SKYRIZI [Suspect]
     Active Substance: RISANKIZUMAB-RZAA
     Indication: Psoriasis
     Route: 058
     Dates: start: 20220830
  2. BUPROPION [Concomitant]
     Active Substance: BUPROPION
     Indication: Depression
  3. Pfizer/BioNTech Covid 19 vaccine [Concomitant]
     Indication: COVID-19 immunisation
     Dosage: 1 IN 1 ONCE (1ST DOSE)
     Route: 030
     Dates: start: 202107, end: 202107
  4. Pfizer/BioNTech Covid 19 vaccine [Concomitant]
     Indication: COVID-19 immunisation
     Dosage: 1 IN 1 ONCE (2ND DOSE)
     Route: 030
     Dates: start: 202108, end: 202108

REACTIONS (2)
  - Chest discomfort [Not Recovered/Not Resolved]
  - Cough [Not Recovered/Not Resolved]

NARRATIVE: CASE EVENT DATE: 20220911
